FAERS Safety Report 5000752-6 (Version None)
Quarter: 2006Q2

REPORT INFORMATION
  Report Type: 
  Country: None (occurrence: None)
  Receive Date: 20060512
  Receipt Date: 20051109
  Transmission Date: 20061013
  Serious: Yes (Hospitalization)
  Sender: FDA-Public Use
  Company Number: US-MERCK-0511USA01570

PATIENT
  Age: 78 Year
  Sex: Male
  Weight: 75 kg

DRUGS (18)
  1. VIOXX [Suspect]
     Indication: ARTHRITIS
     Route: 048
     Dates: start: 20000623, end: 20040930
  2. TOPROL-XL [Concomitant]
     Route: 065
     Dates: start: 19900101
  3. ASPIRIN [Concomitant]
     Route: 065
     Dates: start: 19900101
  4. NARDIL [Concomitant]
     Route: 065
     Dates: start: 19900101, end: 20030101
  5. FLOMAX (MORNIFLUMATE) [Concomitant]
     Route: 065
  6. ACCUPRIL [Concomitant]
     Route: 065
  7. DIAZEPAM [Concomitant]
     Route: 065
     Dates: start: 19900101
  8. CELEXA [Concomitant]
     Route: 065
     Dates: start: 19900101
  9. ACIPHEX [Concomitant]
     Route: 065
  10. DETROL [Concomitant]
     Route: 065
  11. AMBIEN [Concomitant]
     Route: 065
  12. SENNA [Concomitant]
     Route: 065
  13. RISPERDAL [Concomitant]
     Route: 065
  14. BACLOFEN [Concomitant]
     Route: 065
  15. HYDROCHLOROTHIAZIDE AND TRIAMTERENE [Concomitant]
     Route: 065
  16. PEPCID [Concomitant]
     Route: 065
  17. DICLOFENAC [Concomitant]
     Route: 065
  18. PREDNISONE [Concomitant]
     Route: 065

REACTIONS (11)
  - ANGINA UNSTABLE [None]
  - CARDIAC MURMUR [None]
  - CAROTID ARTERY STENOSIS [None]
  - CEREBROVASCULAR ACCIDENT [None]
  - HAEMATOMA [None]
  - INFARCTION [None]
  - LACERATION [None]
  - MITRAL VALVE INCOMPETENCE [None]
  - PERICARDIAL EFFUSION [None]
  - PLEURAL EFFUSION [None]
  - SUBARACHNOID HAEMORRHAGE [None]
